FAERS Safety Report 15547560 (Version 4)
Quarter: 2019Q1

REPORT INFORMATION
  Report Type: Spontaneous
  Country: US (occurrence: US)
  Receive Date: 20181024
  Receipt Date: 20190128
  Transmission Date: 20190417
  Serious: No
  Sender: FDA-Public Use
  Company Number: US-009507513-1810USA007313

PATIENT
  Age: 73 Year
  Sex: Female

DRUGS (11)
  1. LEVOTHYROXINE SODIUM. [Concomitant]
     Active Substance: LEVOTHYROXINE SODIUM
  2. ASMANEX [Suspect]
     Active Substance: MOMETASONE FUROATE
     Indication: ASTHMA
     Dosage: UNK
     Dates: start: 20181001
  3. ASCORBIC ACID. [Concomitant]
     Active Substance: ASCORBIC ACID
  4. KRILL OIL [Concomitant]
     Active Substance: DIETARY SUPPLEMENT
  5. CARTIA (ASPIRIN) [Concomitant]
     Active Substance: ASPIRIN
  6. ASMANEX [Suspect]
     Active Substance: MOMETASONE FUROATE
     Dosage: 1 PUFF/ ONCE DAILY
     Route: 055
  7. ASMANEX [Suspect]
     Active Substance: MOMETASONE FUROATE
     Dosage: UNK
     Dates: start: 2018
  8. VITAMIN D [Concomitant]
     Active Substance: CHOLECALCIFEROL
  9. LUMIGAN [Concomitant]
     Active Substance: BIMATOPROST
  10. VITAMINS (UNSPECIFIED) [Concomitant]
     Active Substance: VITAMINS
  11. XANTHOPHYLL [Concomitant]

REACTIONS (6)
  - Product quality issue [Unknown]
  - Dyspnoea [Recovered/Resolved]
  - Product dose omission [Unknown]
  - Malaise [Unknown]
  - Product quality issue [Recovered/Resolved]
  - Product quality issue [Unknown]

NARRATIVE: CASE EVENT DATE: 201810
